FAERS Safety Report 15935828 (Version 1)
Quarter: 2019Q1

REPORT INFORMATION
  Report Type: Spontaneous
  Country: US (occurrence: US)
  Receive Date: 20190116
  Receipt Date: 20190116
  Transmission Date: 20190417
  Serious: No
  Sender: FDA-Public Use
  Company Number: None

PATIENT
  Age: 53 Year
  Sex: Female

DRUGS (1)
  1. OPSUMIT [Suspect]
     Active Substance: MACITENTAN
     Indication: PULMONARY ARTERIAL HYPERTENSION
     Route: 048
     Dates: start: 20180316

REACTIONS (6)
  - Dyspnoea [None]
  - Pneumonia [None]
  - Sputum discoloured [None]
  - Sneezing [None]
  - Oropharyngeal pain [None]
  - Productive cough [None]

NARRATIVE: CASE EVENT DATE: 20181227
